FAERS Safety Report 16348072 (Version 2)
Quarter: 2019Q2

REPORT INFORMATION
  Report Type: Spontaneous
  Country: JP (occurrence: JP)
  Receive Date: 20190523
  Receipt Date: 20190524
  Transmission Date: 20190711
  Serious: Yes (Death, Disabling)
  Sender: FDA-Public Use
  Company Number: JP-OTSUKA-2019_013340

PATIENT
  Sex: Female

DRUGS (2)
  1. SAMSCA [Suspect]
     Active Substance: TOLVAPTAN
     Indication: CARDIAC FAILURE
  2. SAMSCA [Suspect]
     Active Substance: TOLVAPTAN
     Indication: FLUID RETENTION
     Dosage: UNK
     Route: 050

REACTIONS (3)
  - Respiratory failure [Fatal]
  - Gastrointestinal haemorrhage [Unknown]
  - Incorrect route of product administration [Unknown]
